FAERS Safety Report 10135719 (Version 1)
Quarter: 2014Q2

REPORT INFORMATION
  Report Type: Spontaneous
  Country: IT (occurrence: IT)
  Receive Date: 20140428
  Receipt Date: 20140428
  Transmission Date: 20141212
  Serious: Yes (Hospitalization)
  Sender: FDA-Public Use
  Company Number: PHHY2014IT050207

PATIENT
  Age: 65 Year
  Sex: Female

DRUGS (2)
  1. SANDIMMUN [Suspect]
     Indication: EYE DISORDER
     Dosage: 3 DF, A DAY,EYE DROPS (THE SOLUTION WAS PREPARED IN A PHARMACY), TID
  2. SANDIMMUN [Suspect]
     Indication: OFF LABEL USE

REACTIONS (2)
  - Palpitations [Unknown]
  - Blood pressure increased [Unknown]
